FAERS Safety Report 23771355 (Version 2)
Quarter: 2024Q2

REPORT INFORMATION
  Report Type: Report from Study
  Country: US (occurrence: US)
  Receive Date: 20240423
  Receipt Date: 20240604
  Transmission Date: 20240716
  Serious: No
  Sender: FDA-Public Use
  Company Number: US-AstraZeneca-CH-00607353A

PATIENT
  Sex: Female

DRUGS (1)
  1. SOLIRIS [Suspect]
     Active Substance: ECULIZUMAB
     Indication: Paroxysmal nocturnal haemoglobinuria
     Dosage: UNK UNK, Q3W
     Route: 065

REACTIONS (5)
  - Platelet count decreased [Unknown]
  - Bacterial infection [Unknown]
  - Fall [Unknown]
  - Eye contusion [Unknown]
  - Dizziness [Unknown]
